FAERS Safety Report 4774868-3 (Version None)
Quarter: 2005Q3

REPORT INFORMATION
  Report Type: 
  Country: None (occurrence: None)
  Receive Date: 20050919
  Receipt Date: 20050912
  Transmission Date: 20060218
  Serious: Yes (Hospitalization)
  Sender: FDA-Public Use
  Company Number: ERP05000116

PATIENT
  Age: 85 Year
  Sex: Male

DRUGS (4)
  1. DIDROKIT (ETIDRONATE DISODIUM/CALCIUM CARBONATE CYCLICAL) TABLET, 400/ [Suspect]
     Dosage: DAILY, ORAL
     Route: 048
     Dates: start: 19980101, end: 20050729
  2. HYDROCHLOROTHIAZIDE [Concomitant]
  3. TEMAZEPAM [Concomitant]
  4. DIHYDRAL (DIHYDROTACHYSTEROL) [Concomitant]

REACTIONS (2)
  - OESOPHAGEAL DISORDER [None]
  - OESOPHAGEAL HAEMORRHAGE [None]
